FAERS Safety Report 5265022-X (Version None)
Quarter: 2007Q1

REPORT INFORMATION
  Report Type: 
  Country: None (occurrence: None)
  Receive Date: 20061122
  Receipt Date: 20061006
  Transmission Date: 20070707
  Serious: Yes (Hospitalization)
  Sender: FDA-Public Use
  Company Number: US-JNJFOC-20060705712

PATIENT
  Age: 40 Year
  Sex: Female
  Weight: 59.4 kg

DRUGS (1)
  1. RISPERDAL [Suspect]
     Indication: DRUG USE FOR UNKNOWN INDICATION
     Dosage: 37.5 MG 1 IN 1 TOTAL INTRAVENOUS
     Route: 042
     Dates: start: 20060726, end: 20060726

REACTIONS (2)
  - INCORRECT ROUTE OF DRUG ADMINISTRATION [None]
  - PSYCHOTIC DISORDER [None]
